FAERS Safety Report 12759999 (Version 1)
Quarter: 2016Q3

REPORT INFORMATION
  Report Type: Spontaneous
  Country: US (occurrence: US)
  Receive Date: 20160919
  Receipt Date: 20160919
  Transmission Date: 20161109
  Serious: Yes (Other)
  Sender: FDA-Public Use
  Company Number: US-PFIZER INC-2016435616

PATIENT
  Age: 36 Year
  Sex: Male
  Weight: 132 kg

DRUGS (1)
  1. VIAGRA [Suspect]
     Active Substance: SILDENAFIL CITRATE
     Indication: ERECTILE DYSFUNCTION

REACTIONS (4)
  - Painful erection [Unknown]
  - Intentional overdose [Unknown]
  - Intentional product misuse [Unknown]
  - Erection increased [Unknown]

NARRATIVE: CASE EVENT DATE: 20160914
